FAERS Safety Report 8417833-7 (Version None)
Quarter: 2012Q2

REPORT INFORMATION
  Report Type: 
  Country: None (occurrence: None)
  Receive Date: 20120607
  Receipt Date: 20120531
  Transmission Date: 20120825
  Serious: Yes (Other)
  Sender: FDA-Public Use
  Company Number: US-PFIZER INC-2012132332

PATIENT
  Sex: Male

DRUGS (2)
  1. LYRICA [Suspect]
     Indication: DIABETIC NEUROPATHY
     Dosage: 300MG PER DAY
  2. LYRICA [Suspect]
     Dosage: 450 MG PER DAY

REACTIONS (2)
  - AMNESIA [None]
  - DIZZINESS [None]
